FAERS Safety Report 7611870-8 (Version None)
Quarter: 2011Q3

REPORT INFORMATION
  Report Type: 
  Country: None (occurrence: None)
  Receive Date: 20110715
  Receipt Date: 20110704
  Transmission Date: 20111222
  Serious: Yes (Other)
  Sender: FDA-Public Use
  Company Number: JP-UCBSA-036778

PATIENT

DRUGS (1)
  1. XYZAL [Suspect]
     Route: 048

REACTIONS (1)
  - BONE MARROW FAILURE [None]
